FAERS Safety Report 5759674-5 (Version None)
Quarter: 2008Q2

REPORT INFORMATION
  Report Type: 
  Country: None (occurrence: None)
  Receive Date: 20080605
  Receipt Date: 20080523
  Transmission Date: 20081010
  Serious: Yes (Hospitalization)
  Sender: FDA-Public Use
  Company Number: A0588895A

PATIENT
  Age: 13 Year
  Sex: Male

DRUGS (1)
  1. PAXIL [Suspect]
     Indication: DEPRESSION
     Dosage: 20MG PER DAY
     Route: 048
     Dates: start: 20011022, end: 20011108

REACTIONS (10)
  - AGGRESSION [None]
  - AGITATION [None]
  - ANGER [None]
  - DELUSION [None]
  - EMOTIONAL DISORDER [None]
  - HALLUCINATION [None]
  - HOMICIDAL IDEATION [None]
  - PSYCHOTIC BEHAVIOUR [None]
  - SUICIDAL IDEATION [None]
  - SUICIDE ATTEMPT [None]
